FAERS Safety Report 6068811-7 (Version None)
Quarter: 2009Q1

REPORT INFORMATION
  Report Type: 
  Country: None (occurrence: None)
  Receive Date: 20090203
  Receipt Date: 20090121
  Transmission Date: 20090719
  Serious: Yes (Death)
  Sender: FDA-Public Use
  Company Number: 005470

PATIENT
  Age: 93 Year
  Sex: Male

DRUGS (3)
  1. PLETAL [Suspect]
     Indication: ARTERIOSCLEROSIS OBLITERANS
     Dosage: 100 MG, BID ORAL
     Route: 048
     Dates: start: 20080311
  2. DIURETICS [Concomitant]
  3. TEOFURMATE (THEOPHYLLINE) [Concomitant]

REACTIONS (2)
  - ANAEMIA [None]
  - CARDIO-RESPIRATORY ARREST [None]
